FAERS Safety Report 8966567 (Version 1)
Quarter: 2012Q4

REPORT INFORMATION
  Report Type: 
  Country: US (occurrence: US)
  Receive Date: 20121217
  Receipt Date: 20121217
  Transmission Date: 20130627
  Serious: No
  Sender: FDA-Public Use
  Company Number: US-PFIZER INC-2012317589

PATIENT
  Age: 52 Year
  Sex: Male
  Weight: 79.37 kg

DRUGS (1)
  1. ADVIL [Suspect]
     Indication: PAIN
     Dosage: UNK, 2x/day
     Route: 048
     Dates: start: 201203

REACTIONS (1)
  - Drug ineffective [Unknown]
